FAERS Safety Report 12260051 (Version 1)
Quarter: 2016Q2

REPORT INFORMATION
  Report Type: Spontaneous
  Country: US (occurrence: US)
  Receive Date: 20160412
  Receipt Date: 20160412
  Transmission Date: 20160815
  Serious: No
  Sender: FDA-Public Use
  Company Number: US-SA-2015SA174147

PATIENT
  Age: 80 Year
  Sex: Male

DRUGS (26)
  1. ACCOLATE [Concomitant]
     Active Substance: ZAFIRLUKAST
     Route: 065
  2. SUDAFED [Concomitant]
     Active Substance: PSEUDOEPHEDRINE HYDROCHLORIDE
     Route: 065
  3. DOCUSATE [Concomitant]
     Active Substance: DOCUSATE
     Route: 065
  4. DHEA [Concomitant]
     Active Substance: PRASTERONE
     Route: 065
  5. VITAMIN D/CALCIUM [Concomitant]
     Route: 065
  6. ALLEGRA [Suspect]
     Active Substance: FEXOFENADINE HYDROCHLORIDE
     Route: 065
  7. VENTOLIN [Concomitant]
     Active Substance: ALBUTEROL SULFATE
     Route: 065
  8. XOLAIR [Concomitant]
     Active Substance: OMALIZUMAB
     Route: 065
  9. SYMBICORT [Concomitant]
     Active Substance: BUDESONIDE\FORMOTEROL FUMARATE DIHYDRATE
     Route: 065
  10. LEVOTHYROXINE. [Concomitant]
     Active Substance: LEVOTHYROXINE
     Route: 065
  11. REMERON [Concomitant]
     Active Substance: MIRTAZAPINE
     Route: 065
  12. XALATAN [Concomitant]
     Active Substance: LATANOPROST
     Route: 065
  13. LYCOPENE [Concomitant]
     Active Substance: LYCOPENE
     Route: 065
  14. MYRBETRIQ [Interacting]
     Active Substance: MIRABEGRON
     Route: 065
  15. CLARITIN [Concomitant]
     Active Substance: LORATADINE
     Route: 065
  16. MELATONIN [Concomitant]
     Active Substance: MELATONIN
     Route: 065
  17. VITAMIN D3 [Concomitant]
     Active Substance: CHOLECALCIFEROL
     Route: 065
  18. MAGNESIUM [Concomitant]
     Active Substance: MAGNESIUM
     Route: 065
  19. SALBUTAMOL [Concomitant]
     Active Substance: ALBUTEROL
     Route: 065
  20. MYRBETRIQ [Interacting]
     Active Substance: MIRABEGRON
     Route: 065
     Dates: start: 20150123, end: 20150203
  21. AVODART [Concomitant]
     Active Substance: DUTASTERIDE
     Route: 065
  22. GLUCOSAMINE [Concomitant]
     Active Substance: GLUCOSAMINE
     Route: 065
  23. NASONEX [Concomitant]
     Active Substance: MOMETASONE FUROATE
     Route: 065
  24. FOSAMAX [Concomitant]
     Active Substance: ALENDRONATE SODIUM
     Route: 065
  25. NEXIUM [Concomitant]
     Active Substance: ESOMEPRAZOLE MAGNESIUM
     Route: 065
  26. PANTHENOL/RETINOL/THIAMINE HYDROCHLORIDE/ASCORBIC ACID/ERGOCALCIFEROL/FOLIC ACID/RIBOFLAVIN/NICOTINA [Concomitant]
     Route: 065

REACTIONS (2)
  - Drug interaction [Unknown]
  - Rash [Recovered/Resolved]
